FAERS Safety Report 23122104 (Version 1)
Quarter: 2023Q4

REPORT INFORMATION
  Report Type: Spontaneous
  Country: US (occurrence: US)
  Receive Date: 20231030
  Receipt Date: 20231030
  Transmission Date: 20240109
  Serious: Yes (Hospitalization)
  Sender: FDA-Public Use
  Company Number: US-BRISTOL-MYERS SQUIBB COMPANY-2023-152468

PATIENT
  Age: 96 Year
  Sex: Male
  Weight: 87.91 kg

DRUGS (1)
  1. REVLIMID [Suspect]
     Active Substance: LENALIDOMIDE
     Indication: Plasma cell myeloma
     Dosage: DOSE : 10 MG;     FREQ : 10 MG 1 DAILY FOR 2 WEEK ON AND  TWO WEEKS OFF
     Route: 048
     Dates: start: 20230306

REACTIONS (2)
  - Hospitalisation [Unknown]
  - Off label use [Unknown]
